FAERS Safety Report 9961026 (Version 1)
Quarter: 2014Q1

REPORT INFORMATION
  Report Type: Report from Study
  Country: US (occurrence: US)
  Receive Date: 20140305
  Receipt Date: 20140305
  Transmission Date: 20141002
  Serious: No
  Sender: FDA-Public Use
  Company Number: US-ABBVIE-13P-163-1109697-00

PATIENT
  Age: 41 Year
  Sex: Male
  Weight: 93.52 kg

DRUGS (4)
  1. HUMIRA [Suspect]
     Indication: CROHN^S DISEASE
     Dates: start: 201304, end: 201304
  2. HUMIRA [Suspect]
     Dates: start: 201304, end: 201304
  3. HUMIRA [Suspect]
     Dates: start: 201305
  4. OMPRAZOLE [Concomitant]
     Indication: GASTROOESOPHAGEAL REFLUX DISEASE

REACTIONS (6)
  - Crohn^s disease [Not Recovered/Not Resolved]
  - Injection site pain [Not Recovered/Not Resolved]
  - Injection site pain [Not Recovered/Not Resolved]
  - Abdominal pain [Not Recovered/Not Resolved]
  - Eczema [Not Recovered/Not Resolved]
  - Osteoarthritis [Not Recovered/Not Resolved]
